FAERS Safety Report 8833682 (Version 1)
Quarter: 2012Q4

REPORT INFORMATION
  Report Type: 
  Country: US (occurrence: US)
  Receive Date: 20121010
  Receipt Date: 20121010
  Transmission Date: 20130627
  Serious: No
  Sender: FDA-Public Use
  Company Number: US-BAYER-2012-105689

PATIENT
  Sex: Female

DRUGS (16)
  1. BETASERON [Suspect]
     Indication: MULTIPLE SCLEROSIS
     Dosage: 0.25 mg, QOD
     Route: 058
  2. TARKA [Concomitant]
  3. AVALIDE [Concomitant]
  4. SINGULAIR [Concomitant]
     Dosage: 4 mg, UNK
  5. XYZAL [Concomitant]
     Dosage: 5 mg, UNK
  6. DEXILANT [Concomitant]
     Dosage: 30 mg, UNK
  7. PROVIGIL [Concomitant]
     Dosage: 100 mg, UNK
  8. TRAMADOL [Concomitant]
     Dosage: 50 mg, UNK
  9. MULTIVITAMIN [Concomitant]
  10. CALCIUM [Concomitant]
     Dosage: 500 mg, UNK
  11. MAGNESIUM [Concomitant]
     Dosage: 30 mg, UNK
  12. BIOTIN [Concomitant]
     Dosage: 5 mg, UNK
  13. COQ10 [Concomitant]
     Dosage: 30 mg, UNK
  14. MSM [Concomitant]
     Dosage: 500 mg, UNK
  15. CHONDROITIN [Concomitant]
     Dosage: 250 mg, UNK
  16. POTASSIUM [Concomitant]
     Dosage: 75 mg, UNK

REACTIONS (1)
  - Pain [Unknown]
